FAERS Safety Report 4961837-3 (Version None)
Quarter: 2006Q2

REPORT INFORMATION
  Report Type: 
  Country: None (occurrence: None)
  Receive Date: 20060404
  Receipt Date: 20060314
  Transmission Date: 20061013
  Serious: Yes (Other)
  Sender: FDA-Public Use
  Company Number: DE-GLAXOSMITHKLINE-D0049018A

PATIENT
  Sex: Female

DRUGS (2)
  1. LAMICTAL [Suspect]
     Dosage: 100MG TWICE PER DAY
     Route: 065
  2. CONTRACEPTIVE [Suspect]
     Route: 065

REACTIONS (3)
  - AMENORRHOEA [None]
  - BREAST SWELLING [None]
  - DRUG INTERACTION [None]
